FAERS Safety Report 25799999 (Version 1)
Quarter: 2025Q3

REPORT INFORMATION
  Report Type: Spontaneous
  Country: JP (occurrence: JP)
  Receive Date: 20250914
  Receipt Date: 20250914
  Transmission Date: 20251021
  Serious: Yes (Other)
  Sender: JOHNSON AND JOHNSON
  Company Number: JP-BAYER-2025A118877

PATIENT

DRUGS (2)
  1. XARELTO [Suspect]
     Active Substance: RIVAROXABAN
     Indication: Cerebrovascular accident prophylaxis
     Route: 048
  2. XARELTO [Suspect]
     Active Substance: RIVAROXABAN
     Indication: Atrial fibrillation

REACTIONS (7)
  - Coronavirus infection [Unknown]
  - Coronavirus pneumonia [Unknown]
  - Enterocolitis viral [Unknown]
  - Disseminated intravascular coagulation [Unknown]
  - Embolic cerebral infarction [Unknown]
  - Chronic kidney disease [Unknown]
  - Platelet count decreased [Unknown]
